FAERS Safety Report 14113164 (Version 1)
Quarter: 2017Q4

REPORT INFORMATION
  Report Type: Spontaneous
  Country: US (occurrence: None)
  Receive Date: 20171020
  Receipt Date: 20171020
  Transmission Date: 20180321
  Serious: Yes (Hospitalization)
  Sender: FDA-Public Use
  Company Number: None

PATIENT
  Age: 62 Year
  Sex: Male

DRUGS (1)
  1. IBUPROFEN. [Suspect]
     Active Substance: IBUPROFEN
     Indication: BACK PAIN
     Route: 048
     Dates: start: 20150217

REACTIONS (8)
  - Haematocrit decreased [None]
  - Dizziness [None]
  - Melaena [None]
  - Gastric haemorrhage [None]
  - Haemoglobin decreased [None]
  - Duodenal ulcer [None]
  - Haematemesis [None]
  - Oesophagitis [None]

NARRATIVE: CASE EVENT DATE: 20170718
